FAERS Safety Report 20913353 (Version 1)
Quarter: 2022Q2

REPORT INFORMATION
  Report Type: Spontaneous
  Country: NZ (occurrence: NZ)
  Receive Date: 20220603
  Receipt Date: 20220603
  Transmission Date: 20220721
  Serious: Yes (Hospitalization, Other)
  Sender: FDA-Public Use
  Company Number: NZ-FreseniusKabi-FK202207796

PATIENT
  Sex: Male

DRUGS (2)
  1. ACETAMINOPHEN [Suspect]
     Active Substance: ACETAMINOPHEN
     Indication: Patent ductus arteriosus
     Dosage: 15 MG/KG/DOSE AT 6 HOURLY INTERVALS
     Route: 042
  2. INDOMETHACIN [Concomitant]
     Active Substance: INDOMETHACIN
     Indication: Patent ductus arteriosus
     Dosage: 0.1 MG/KG/DOSE, EVERY 24H
     Route: 042

REACTIONS (2)
  - Acute hepatic failure [Recovered/Resolved]
  - Toxicity to various agents [Recovered/Resolved]
